FAERS Safety Report 7367027-1 (Version None)
Quarter: 2011Q1

REPORT INFORMATION
  Report Type: 
  Country: None (occurrence: None)
  Receive Date: 20110322
  Receipt Date: 20101020
  Transmission Date: 20110831
  Serious: Yes (Other)
  Sender: FDA-Public Use
  Company Number: HU-AMGEN-QUU436255

PATIENT
  Age: 37 Year
  Sex: Female

DRUGS (1)
  1. NPLATE [Suspect]
     Indication: PRODUCT USED FOR UNKNOWN INDICATION
     Dosage: 3 A?G/KG, UNK

REACTIONS (3)
  - NEURALGIA [None]
  - PAIN IN EXTREMITY [None]
  - PLATELET COUNT INCREASED [None]
